FAERS Safety Report 9879334 (Version 2)
Quarter: 2014Q1

REPORT INFORMATION
  Report Type: Spontaneous
  Country: US (occurrence: US)
  Receive Date: 20140206
  Receipt Date: 20140206
  Transmission Date: 20141002
  Serious: No
  Sender: FDA-Public Use
  Company Number: US-ALLERGAN-1314443US

PATIENT
  Age: 54 Year
  Sex: Female

DRUGS (2)
  1. BOTOX [Suspect]
     Indication: MIGRAINE
     Dosage: 175 UNITS, SINGLE
     Route: 030
     Dates: start: 20130906, end: 20130906
  2. BOTOX [Suspect]
     Dosage: 20 UNITS, SINGLE
     Route: 030
     Dates: start: 20130906, end: 20130906

REACTIONS (2)
  - Muscular weakness [Recovered/Resolved]
  - Dysphagia [Recovered/Resolved]
